FAERS Safety Report 9011792 (Version 3)
Quarter: 2013Q1

REPORT INFORMATION
  Report Type: Spontaneous
  Country: FR (occurrence: FR)
  Receive Date: 20130113
  Receipt Date: 20130226
  Transmission Date: 20140127
  Serious: Yes (Life-Threatening, Hospitalization)
  Sender: FDA-Public Use
  Company Number: FR-AMGEN-FRASP2013001167

PATIENT
  Age: 76 Year
  Sex: Female

DRUGS (2)
  1. VECTIBIX [Suspect]
     Indication: COLON CANCER METASTATIC
     Dosage: 420 MG, 1 IN 1 DAY
     Route: 042
     Dates: start: 20121228, end: 20121228
  2. VECTIBIX [Suspect]
     Dosage: 420 MG, 1 IN 1 DAY
     Route: 042
     Dates: start: 20121228, end: 20121228

REACTIONS (5)
  - Anaphylactic reaction [Recovered/Resolved]
  - Respiratory disorder [Recovered/Resolved]
  - Hyperhidrosis [Recovered/Resolved]
  - Oxygen saturation decreased [Recovered/Resolved]
  - Dyspnoea [Recovered/Resolved]
